FAERS Safety Report 16864112 (Version 1)
Quarter: 2019Q3

REPORT INFORMATION
  Report Type: Spontaneous
  Country: ES (occurrence: ES)
  Receive Date: 20190927
  Receipt Date: 20190927
  Transmission Date: 20191005
  Serious: Yes (Life-Threatening, Hospitalization)
  Sender: FDA-Public Use
  Company Number: PHHY2019ES222353

PATIENT
  Age: 50 Year
  Sex: Female

DRUGS (5)
  1. ANAFRANIL [Interacting]
     Active Substance: CLOMIPRAMINE HYDROCHLORIDE
     Indication: ADJUSTMENT DISORDER WITH ANXIETY
     Dosage: 2.5 G, (TOTAL)
     Route: 048
     Dates: start: 20190516, end: 20190516
  2. QUETIAPINE. [Suspect]
     Active Substance: QUETIAPINE
     Indication: ADJUSTMENT DISORDER WITH ANXIETY
     Dosage: 3 G, TOTAL
     Route: 048
     Dates: start: 20190516, end: 20190516
  3. ENALAPRIL + HIDROCLOROTIAZIDA [Concomitant]
     Active Substance: ENALAPRIL MALEATE\HYDROCHLOROTHIAZIDE
     Indication: HYPERTENSION
     Dosage: 1 DF, QD
     Route: 048
     Dates: start: 201509, end: 20190516
  4. CLONAZEPAM. [Interacting]
     Active Substance: CLONAZEPAM
     Indication: ADJUSTMENT DISORDER WITH ANXIETY
     Dosage: 84 MG, QD
     Route: 048
     Dates: start: 20190516, end: 20190516
  5. NAPROXENO [Concomitant]
     Active Substance: NAPROXEN
     Indication: PRODUCT USED FOR UNKNOWN INDICATION
     Dosage: 20 G, UNK (TOTAL)
     Route: 048
     Dates: start: 20190516, end: 20190516

REACTIONS (2)
  - Intentional overdose [Recovered/Resolved]
  - Depressed level of consciousness [Recovered/Resolved]

NARRATIVE: CASE EVENT DATE: 20190516
